FAERS Safety Report 14432183 (Version 1)
Quarter: 2018Q1

REPORT INFORMATION
  Report Type: Spontaneous
  Country: US (occurrence: US)
  Receive Date: 20180124
  Receipt Date: 20180124
  Transmission Date: 20180509
  Serious: Yes (Hospitalization, Other)
  Sender: FDA-Public Use
  Company Number: US-WEST-WARD PHARMACEUTICALS CORP.-US-H14001-18-00404

PATIENT
  Age: 40 Year
  Sex: Female

DRUGS (1)
  1. KETAMINE [Suspect]
     Active Substance: KETAMINE
     Indication: COMPLEX REGIONAL PAIN SYNDROME
     Route: 065

REACTIONS (3)
  - Condition aggravated [Unknown]
  - Complex regional pain syndrome [Unknown]
  - Off label use [Unknown]
